FAERS Safety Report 21403746 (Version 2)
Quarter: 2022Q4

REPORT INFORMATION
  Report Type: Spontaneous
  Country: US (occurrence: US)
  Receive Date: 20221003
  Receipt Date: 20221128
  Transmission Date: 20230112
  Serious: No
  Sender: FDA-Public Use
  Company Number: US-PFIZER INC-202201196302

PATIENT
  Age: 52 Year
  Sex: Female
  Weight: 56.25 kg

DRUGS (2)
  1. IBRANCE [Suspect]
     Active Substance: PALBOCICLIB
     Indication: Breast cancer female
     Dosage: 75 MG, CYCLIC (3 WEEKS ON 1 WEEK OFF )
     Dates: start: 20220303
  2. TAMOXIFEN [Concomitant]
     Active Substance: TAMOXIFEN
     Dosage: UNK

REACTIONS (2)
  - Product dose omission in error [Unknown]
  - Memory impairment [Unknown]
